FAERS Safety Report 6146065-0 (Version None)
Quarter: 2009Q2

REPORT INFORMATION
  Report Type: 
  Country: None (occurrence: None)
  Receive Date: 20090403
  Receipt Date: 20081215
  Transmission Date: 20091009
  Serious: Yes (Disabling)
  Sender: FDA-Public Use
  Company Number: 000186

PATIENT
  Sex: Male
  Weight: 84 kg

DRUGS (3)
  1. NEUPRO [Suspect]
     Indication: PARKINSON'S DISEASE
     Dosage: (12 MG QD, 12MG/24H TRANSDERMAL)
     Route: 062
     Dates: start: 20070701
  2. TASMAR [Concomitant]
  3. L-DOPA [Concomitant]

REACTIONS (7)
  - APPLICATION SITE ECZEMA [None]
  - APPLICATION SITE ERYTHEMA [None]
  - APPLICATION SITE PRURITUS [None]
  - APPLICATION SITE PUSTULES [None]
  - DRUG EFFECT DECREASED [None]
  - RASH [None]
  - TREATMENT NONCOMPLIANCE [None]
